FAERS Safety Report 12306743 (Version 1)
Quarter: 2016Q2

REPORT INFORMATION
  Report Type: Spontaneous
  Country: US (occurrence: US)
  Receive Date: 20160426
  Receipt Date: 20160426
  Transmission Date: 20160815
  Serious: No
  Sender: FDA-Public Use
  Company Number: US-ALKERMES INC.-ALK-2016-000813

PATIENT

DRUGS (1)
  1. VIVITROL [Suspect]
     Active Substance: NALTREXONE
     Indication: ALCOHOLISM
     Dosage: 380 MG, UNK
     Route: 030

REACTIONS (7)
  - Injection site pruritus [Unknown]
  - Injection site pain [Unknown]
  - Injection site reaction [Unknown]
  - Quality of life decreased [Unknown]
  - Gait disturbance [Unknown]
  - Injection site mass [Unknown]
  - Injection site discomfort [Unknown]

NARRATIVE: CASE EVENT DATE: 20160224
